FAERS Safety Report 7525003-X (Version None)
Quarter: 2011Q2

REPORT INFORMATION
  Report Type: 
  Country: None (occurrence: None)
  Receive Date: 20110606
  Receipt Date: 20110601
  Transmission Date: 20111010
  Serious: Yes (Death, Hospitalization, Other)
  Sender: FDA-Public Use
  Company Number: US-ASTELLAS-2011US001221

PATIENT
  Sex: Female
  Weight: 58 kg

DRUGS (18)
  1. COLACE [Concomitant]
     Indication: CONSTIPATION
     Dosage: 100 MG, BID PRN
     Route: 048
  2. TOPROL-XL [Concomitant]
     Indication: PRODUCT USED FOR UNKNOWN INDICATION
     Dosage: 25 MG, UID/QD
     Route: 048
  3. CELLCEPT [Concomitant]
     Indication: HEART AND LUNG TRANSPLANT
     Dosage: 250 MG, BID
     Route: 065
  4. PREDNISONE [Concomitant]
     Dosage: 10 MG, UID/QD
     Route: 048
     Dates: start: 20110310
  5. AMBIEN [Concomitant]
     Indication: SEDATION
     Dosage: 5 MG, QHS
     Route: 048
  6. ALBUTEROL SULFATE AUTOHALER [Concomitant]
     Indication: WHEEZING
     Dosage: 0.083 %, 2.5 MG/3ML Q4 HRS PRN
     Route: 055
  7. CALCIUM CARBONATE [Concomitant]
     Indication: PRODUCT USED FOR UNKNOWN INDICATION
     Dosage: 1250 MG, BID
     Route: 048
  8. PRILOSEC [Concomitant]
     Indication: PRODUCT USED FOR UNKNOWN INDICATION
     Dosage: 40 MG, UID/QD
     Route: 048
  9. FOLIC ACID [Concomitant]
     Indication: PRODUCT USED FOR UNKNOWN INDICATION
     Dosage: 1 MG, UID/QD
     Route: 048
  10. VALCYTE [Concomitant]
     Indication: ANTIVIRAL PROPHYLAXIS
     Dosage: 450 MG, BID
     Route: 048
  11. VITAMIN D2 [Concomitant]
     Indication: PRODUCT USED FOR UNKNOWN INDICATION
     Dosage: 1 CAPSULE EVERY M AND TH
     Route: 048
  12. IPRATROPIUM BROMIDE AND ALBUTEROL SULFATE [Concomitant]
     Indication: PRODUCT USED FOR UNKNOWN INDICATION
     Dosage: 2 PUFFS QID PRN
     Route: 055
  13. PROGRAF [Suspect]
     Indication: HEART AND LUNG TRANSPLANT
     Dosage: 4 MG IN AM, 3 MG IN PM
     Route: 048
     Dates: start: 20090526, end: 20110323
  14. BACTRIM DS [Concomitant]
     Indication: ANTIFUNGAL PROPHYLAXIS
     Dosage: 800/160 MG Q M, W, F
  15. M.V.I. [Concomitant]
     Indication: PRODUCT USED FOR UNKNOWN INDICATION
     Dosage: 1 DF, UID/QD
     Route: 048
  16. PREDNISONE [Concomitant]
     Indication: HEART AND LUNG TRANSPLANT
     Dosage: 20 MG, UID/QD
     Route: 048
     Dates: end: 20110309
  17. ALBUTEROL SULFATE AUTOHALER [Concomitant]
     Indication: DYSPNOEA
  18. GABAPENTIN [Concomitant]
     Indication: PRODUCT USED FOR UNKNOWN INDICATION
     Dosage: 300 MG, UID/QD
     Route: 048

REACTIONS (20)
  - OFF LABEL USE [None]
  - PNEUMONIA [None]
  - CARDIAC FAILURE CONGESTIVE [None]
  - NEUTROPENIA [None]
  - ANXIETY [None]
  - TREATMENT NONCOMPLIANCE [None]
  - ACUTE RESPIRATORY FAILURE [None]
  - PLEURAL EFFUSION [None]
  - CARDIO-RESPIRATORY ARREST [None]
  - CANDIDIASIS [None]
  - RENAL FAILURE [None]
  - NEUROPATHY PERIPHERAL [None]
  - HYPERTENSION [None]
  - LEUKOPENIA [None]
  - MYCOBACTERIUM AVIUM COMPLEX INFECTION [None]
  - OBLITERATIVE BRONCHIOLITIS [None]
  - URINARY TRACT INFECTION [None]
  - DRUG INEFFECTIVE FOR UNAPPROVED INDICATION [None]
  - TRANSPLANT REJECTION [None]
  - RESPIRATORY SYNCYTIAL VIRUS BRONCHIOLITIS [None]
